FAERS Safety Report 18136591 (Version 29)
Quarter: 2024Q4

REPORT INFORMATION
  Report Type: Spontaneous
  Country: CA (occurrence: CA)
  Receive Date: 20200811
  Receipt Date: 20241115
  Transmission Date: 20250115
  Serious: Yes (Hospitalization, Other)
  Sender: CELLTRION
  Company Number: CA-CELLTRION INC.-2019CA025952

PATIENT

DRUGS (40)
  1. INFLECTRA [Suspect]
     Active Substance: INFLIXIMAB-DYYB
     Indication: Crohn^s disease
     Dosage: 5 MG/KG (AT 0, 2, 6 WEEKS, THEN EVERY 8 WEEKS)
     Route: 042
     Dates: start: 20191016, end: 20191016
  2. INFLECTRA [Suspect]
     Active Substance: INFLIXIMAB-DYYB
     Dosage: 5 MG/KG (AT 0, 2, 6 WEEKS, THEN EVERY 8 WEEKS)
     Route: 042
     Dates: start: 20191016, end: 20201027
  3. INFLECTRA [Suspect]
     Active Substance: INFLIXIMAB-DYYB
     Dosage: 5 MG/KG (AT 0, 2, 6 WEEKS, THEN EVERY 8 WEEKS)
     Route: 042
     Dates: start: 20191106
  4. INFLECTRA [Suspect]
     Active Substance: INFLIXIMAB-DYYB
     Dosage: 5 MG/KG (AT 0, 2, 6 WEEKS, THEN EVERY 8 WEEKS)
     Route: 042
     Dates: start: 20191205, end: 20191205
  5. INFLECTRA [Suspect]
     Active Substance: INFLIXIMAB-DYYB
     Dosage: 5 MG/KG (AT 0, 2, 6 WEEKS, THEN EVERY 8 WEEKS)
     Route: 042
     Dates: start: 20200131, end: 20200131
  6. INFLECTRA [Suspect]
     Active Substance: INFLIXIMAB-DYYB
     Dosage: 5 MG/KG (AT 0, 2, 6 WEEKS, THEN EVERY 8 WEEKS)
     Route: 042
     Dates: start: 20200325, end: 20200325
  7. INFLECTRA [Suspect]
     Active Substance: INFLIXIMAB-DYYB
     Dosage: 5 MG/KG, AFTER 11 WEEKS AND 1 DAY (PRESCRIBED EVERY 8 WEEKS)
     Route: 042
     Dates: start: 20200611
  8. INFLECTRA [Suspect]
     Active Substance: INFLIXIMAB-DYYB
     Dosage: 5 MG/KG (AT 0, 2, 6 WEEKS, THEN EVERY 8 WEEKS)
     Route: 042
     Dates: start: 20200804, end: 20200804
  9. INFLECTRA [Suspect]
     Active Substance: INFLIXIMAB-DYYB
     Dosage: 5 MG/KG (AT 0, 2, 6 WEEKS, THEN EVERY 8 WEEKS)
     Route: 042
     Dates: start: 20201027
  10. INFLECTRA [Suspect]
     Active Substance: INFLIXIMAB-DYYB
     Dosage: 300 MG, EVERY 8 WEEKS
     Route: 042
     Dates: start: 20201222
  11. INFLECTRA [Suspect]
     Active Substance: INFLIXIMAB-DYYB
     Dosage: 300 MG, EVERY 8 WEEKS
     Route: 042
     Dates: start: 20201222, end: 20220615
  12. INFLECTRA [Suspect]
     Active Substance: INFLIXIMAB-DYYB
     Dosage: 300 MG, EVERY 8 WEEKS
     Route: 042
     Dates: start: 20210415
  13. INFLECTRA [Suspect]
     Active Substance: INFLIXIMAB-DYYB
     Dosage: 300 MG, EVERY 8 WEEKS
     Route: 042
     Dates: start: 20210614, end: 20210614
  14. INFLECTRA [Suspect]
     Active Substance: INFLIXIMAB-DYYB
     Dosage: 300 MG, EVERY 8 WEEKS
     Route: 042
     Dates: start: 20210805
  15. INFLECTRA [Suspect]
     Active Substance: INFLIXIMAB-DYYB
     Dosage: 300 MG, EVERY 8 WEEKS
     Route: 042
     Dates: start: 20210930
  16. INFLECTRA [Suspect]
     Active Substance: INFLIXIMAB-DYYB
     Dosage: 300 MG, AFTER 11 WEEKS (PRESCRIBED EVERY 8 WEEKS)
     Route: 042
     Dates: start: 20211216
  17. INFLECTRA [Suspect]
     Active Substance: INFLIXIMAB-DYYB
     Dosage: 300 MG, EVERY 8 WEEKS
     Route: 042
     Dates: start: 20220407
  18. INFLECTRA [Suspect]
     Active Substance: INFLIXIMAB-DYYB
     Dosage: 300 MG, AFTER 9 WEEKS AND 6 DAYS (PRESCRIBED EVERY 8 WEEKS)
     Route: 042
     Dates: start: 20220615
  19. INFLECTRA [Suspect]
     Active Substance: INFLIXIMAB-DYYB
     Dosage: 10 MG/KG, AFTER 10 WEEKS AND 6 DAYS (PRESCRIBED EVERY 8 WEEKS)
     Route: 042
     Dates: start: 20220830
  20. INFLECTRA [Suspect]
     Active Substance: INFLIXIMAB-DYYB
     Dosage: 10 MG/KG, AFTER 10 WEEKS AND 3 DAYS (PRESCRIBED EVERY 8 WEEKS)
     Route: 042
     Dates: start: 20221111
  21. INFLECTRA [Suspect]
     Active Substance: INFLIXIMAB-DYYB
     Dosage: 10 MG/KG, EVERY 8 WEEKS
     Route: 042
     Dates: start: 20230103
  22. INFLECTRA [Suspect]
     Active Substance: INFLIXIMAB-DYYB
     Dosage: 10 MG/KG (600 MG), EVERY 8 WEEKS
     Route: 042
     Dates: start: 20230307, end: 20230307
  23. INFLECTRA [Suspect]
     Active Substance: INFLIXIMAB-DYYB
     Dosage: 10 MG/KG (600 MG), EVERY 8 WEEKS
     Route: 042
     Dates: start: 20230502
  24. INFLECTRA [Suspect]
     Active Substance: INFLIXIMAB-DYYB
     Dosage: 10 MG/KG (600 MG), EVERY 8 WEEKS
     Route: 042
     Dates: start: 20230627
  25. INFLECTRA [Suspect]
     Active Substance: INFLIXIMAB-DYYB
     Dosage: 10 MG/KG (650 MG), AFTER 11 WEEKS (SUPPOSED TO RECEIVED EVERY 8 WEEKS)
     Route: 042
     Dates: start: 20230913
  26. INFLECTRA [Suspect]
     Active Substance: INFLIXIMAB-DYYB
     Dosage: 10 MG/KG, EVERY 8 WEEKS
     Route: 042
     Dates: start: 20240826
  27. INFLECTRA [Suspect]
     Active Substance: INFLIXIMAB-DYYB
     Dosage: 10 MG/KG (650MG), EVERY 8 WEEKS (BUT RECEIVED IT 10 WEEKS AND 1 DAY AFTER LAST TREATMENT)
     Route: 042
     Dates: start: 20241105
  28. ALTACE [Concomitant]
     Active Substance: RAMIPRIL
     Dosage: 1 DF, DOSAGE NOT AVAILABLE
     Route: 065
  29. CALCIUM\VITAMIN D [Concomitant]
     Active Substance: CALCIUM\VITAMIN D
     Dosage: 2000 IU, DAILY
  30. CALCIUM\VITAMIN D [Concomitant]
     Active Substance: CALCIUM\VITAMIN D
     Dosage: 2000 IU, 1X/DAY
     Route: 065
  31. ISONIAZID [Concomitant]
     Active Substance: ISONIAZID
     Indication: Latent tuberculosis
     Dosage: 1 DF
     Route: 065
  32. ISONIAZID [Concomitant]
     Active Substance: ISONIAZID
     Dosage: 1 DF, DOSAGE NOT AVAILABLE
     Route: 065
  33. METAMUCIL [Concomitant]
     Active Substance: PLANTAGO SEED
     Dosage: 1 DF
     Route: 065
  34. METAMUCIL [Concomitant]
     Active Substance: PLANTAGO SEED
     Dosage: 1 DF, DOSAGE NOT AVAILABLE
     Route: 065
  35. PENTASA [Concomitant]
     Active Substance: MESALAMINE
     Dosage: 3 G, 1X/DAY
     Route: 065
  36. PREDNISONE [Concomitant]
     Active Substance: PREDNISONE
     Dosage: 30 MG, 1XDAY (TAPERING)
     Dates: end: 20190517
  37. PREDNISONE [Concomitant]
     Active Substance: PREDNISONE
     Dosage: 10 MG, 1XDAY (TAPERING) UNKNOWN IF ONGOING
     Route: 065
     Dates: start: 20190517
  38. RAMIPRIL [Concomitant]
     Active Substance: RAMIPRIL
     Dosage: 1 DF
     Route: 065
  39. VITAMIN D NOS [Concomitant]
     Active Substance: CHOLECALCIFEROL\ERGOCALCIFEROL
     Dosage: 2000 IU, DAILY
  40. VITAMIN D NOS [Concomitant]
     Active Substance: CHOLECALCIFEROL\ERGOCALCIFEROL
     Dosage: 2000 IU, 1X/DAY
     Route: 065

REACTIONS (24)
  - Stomal hernia [Not Recovered/Not Resolved]
  - Blood pressure increased [Unknown]
  - Colostomy [Unknown]
  - Drug level decreased [Unknown]
  - Condition aggravated [Not Recovered/Not Resolved]
  - Abdominal pain upper [Recovered/Resolved]
  - Anxiety [Unknown]
  - Insomnia [Unknown]
  - Back pain [Recovering/Resolving]
  - Arthralgia [Recovered/Resolved]
  - Blood pressure fluctuation [Unknown]
  - Herpes zoster [Recovering/Resolving]
  - Gastroenteritis viral [Recovered/Resolved]
  - Discomfort [Unknown]
  - Illness [Not Recovered/Not Resolved]
  - Pain [Unknown]
  - Weight increased [Unknown]
  - Memory impairment [Not Recovered/Not Resolved]
  - Mobility decreased [Unknown]
  - Off label use [Unknown]
  - Off label use [Unknown]
  - Off label use [Unknown]
  - Intentional product use issue [Unknown]
  - Inappropriate schedule of product administration [Unknown]

NARRATIVE: CASE EVENT DATE: 20191016
